FAERS Safety Report 11180567 (Version 1)
Quarter: 2015Q2

REPORT INFORMATION
  Report Type: Report from Study
  Country: AU (occurrence: None)
  Receive Date: 20150609
  Receipt Date: 20150609
  Transmission Date: 20150821
  Serious: Yes (Other)
  Sender: FDA-Public Use
  Company Number: 2015-11462

PATIENT
  Age: 75 Year
  Sex: Female

DRUGS (1)
  1. EYLEA [Suspect]
     Active Substance: AFLIBERCEPT
     Indication: NEOVASCULAR AGE-RELATED MACULAR DEGENERATION
     Dosage: IN RIGHT EYE
     Route: 031
     Dates: start: 201505

REACTIONS (4)
  - Neovascular age-related macular degeneration [None]
  - Anxiety [None]
  - Fear of injection [None]
  - Injection site pain [None]

NARRATIVE: CASE EVENT DATE: 20150327
